FAERS Safety Report 5880082-0 (Version None)
Quarter: 2008Q3

REPORT INFORMATION
  Report Type: 
  Country: None (occurrence: None)
  Receive Date: 20080912
  Receipt Date: 20080905
  Transmission Date: 20090109
  Serious: Yes (Other)
  Sender: FDA-Public Use
  Company Number: GB-AVENTIS-200818454GDDC

PATIENT
  Age: 37 Year
  Sex: Male

DRUGS (4)
  1. ARAVA [Suspect]
     Indication: PSORIATIC ARTHROPATHY
     Route: 048
     Dates: start: 20080201, end: 20080501
  2. ADCAL-D3 [Concomitant]
     Dosage: DOSE QUANTITY: 1
     Route: 048
  3. COD LIVER OIL [Concomitant]
     Dosage: DOSE QUANTITY: 1
     Route: 048
  4. ETORICOXIB [Concomitant]
     Route: 048

REACTIONS (10)
  - CHEST PAIN [None]
  - COORDINATION ABNORMAL [None]
  - COUGH [None]
  - HEADACHE [None]
  - HYPOAESTHESIA [None]
  - MUSCULAR WEAKNESS [None]
  - PAIN [None]
  - PARAESTHESIA [None]
  - PYREXIA [None]
  - VOMITING [None]
